FAERS Safety Report 7831580-1 (Version None)
Quarter: 2011Q4

REPORT INFORMATION
  Report Type: 
  Country: None (occurrence: None)
  Receive Date: 20111021
  Receipt Date: 20111020
  Transmission Date: 20120403
  Serious: Yes (Hospitalization, Other)
  Sender: FDA-Public Use
  Company Number: ES-ROXANE LABORATORIES, INC.-2011-RO-01512RO

PATIENT
  Age: 34 Year
  Sex: Female

DRUGS (4)
  1. RISPERIDONE [Suspect]
     Indication: HALLUCINATION, AUDITORY
  2. RISPERIDONE [Suspect]
     Indication: DEPRESSIVE SYMPTOM
     Dosage: 1.5 MG
  3. SERTRALINE HYDROCHLORIDE [Suspect]
     Indication: DEPRESSIVE SYMPTOM
  4. SERTRALINE HYDROCHLORIDE [Suspect]
     Dosage: 250 MG

REACTIONS (3)
  - HALLUCINATION, AUDITORY [None]
  - DEPRESSION [None]
  - HALLUCINATION, VISUAL [None]
